FAERS Safety Report 6162305-6 (Version None)
Quarter: 2009Q2

REPORT INFORMATION
  Report Type: 
  Country: None (occurrence: None)
  Receive Date: 20090417
  Receipt Date: 20090406
  Transmission Date: 20091009
  Serious: Yes (Death)
  Sender: FDA-Public Use
  Company Number: 200904IM000137

PATIENT
  Age: 3 Month
  Sex: Female

DRUGS (6)
  1. INTERFERON GAMMA-1B [Suspect]
     Indication: BOVINE TUBERCULOSIS
  2. BACILLE CALMETTE-GUERIN VACCINE [Concomitant]
  3. ISONIAZID [Concomitant]
  4. RIFAMPIN [Concomitant]
  5. ETHAMBUTOL HCL [Concomitant]
  6. STREPTOMYCIN [Concomitant]

REACTIONS (5)
  - HEPATOSPLENOMEGALY [None]
  - LYMPHADENOPATHY [None]
  - PYREXIA [None]
  - RED BLOOD CELL SEDIMENTATION RATE INCREASED [None]
  - WEIGHT DECREASED [None]
